FAERS Safety Report 6395399-3 (Version None)
Quarter: 2009Q4

REPORT INFORMATION
  Report Type: 
  Country: None (occurrence: None)
  Receive Date: 20091009
  Receipt Date: 20090929
  Transmission Date: 20100525
  Serious: Yes (Hospitalization, Other)
  Sender: FDA-Public Use
  Company Number: US-ELI_LILLY_AND_COMPANY-US200909007013

PATIENT
  Sex: Female
  Weight: 86 kg

DRUGS (13)
  1. BYETTA [Suspect]
     Indication: TYPE 2 DIABETES MELLITUS
     Dosage: 10 UG, 2/D
     Route: 058
     Dates: end: 20090921
  2. COUMADIN [Concomitant]
     Dates: end: 20090921
  3. LOVASTATIN [Concomitant]
     Dosage: 40 MG, DAILY (1/D)
     Route: 048
  4. REQUIP [Concomitant]
     Dosage: 1 MG, EACH EVENING
     Route: 048
  5. LEXAPRO [Concomitant]
     Dosage: 20 MG, DAILY (1/D)
     Dates: end: 20090921
  6. LEXAPRO [Concomitant]
     Dosage: 20 MG, DAILY (1/D)
     Route: 048
     Dates: start: 20090901
  7. VOLTAREN [Concomitant]
     Dosage: UNK, DAILY (1/D)
  8. ASPIRIN [Concomitant]
     Dosage: UNK, DAILY (1/D)
     Dates: end: 20090921
  9. LORA TAB [Concomitant]
     Dosage: 3.75 MG, DAILY (1/D)
  10. ROZEREM [Concomitant]
     Dosage: 8 MG, EACH EVENING
     Route: 048
  11. TRAZODONE [Concomitant]
  12. GLUCOPHAGE [Concomitant]
     Dosage: 1000 MG, 2/D
     Route: 048
  13. INFLUENZA VACCINE [Concomitant]

REACTIONS (13)
  - AUTOIMMUNE DISORDER [None]
  - BLOOD URINE PRESENT [None]
  - DRUG INTERACTION [None]
  - ELECTROCARDIOGRAM QT PROLONGED [None]
  - HAEMATOMA [None]
  - HAEMORRHAGE [None]
  - HEADACHE [None]
  - INJECTION SITE HAEMATOMA [None]
  - INTERNATIONAL NORMALISED RATIO INCREASED [None]
  - MOUTH HAEMORRHAGE [None]
  - PUNCTURE SITE HAEMORRHAGE [None]
  - RHEUMATOID ARTHRITIS [None]
  - SYNCOPE [None]
